FAERS Safety Report 6540545-1 (Version None)
Quarter: 2010Q1

REPORT INFORMATION
  Report Type: 
  Country: None (occurrence: None)
  Receive Date: 20100118
  Receipt Date: 20100106
  Transmission Date: 20100710
  Serious: Yes (Other)
  Sender: FDA-Public Use
  Company Number: CH-RANBAXY-2009RR-29949

PATIENT
  Age: 68 Year
  Sex: Male

DRUGS (3)
  1. CIPROFLOXACIN [Suspect]
     Indication: STAPHYLOCOCCAL INFECTION
     Route: 048
  2. RIFAMPICIN [Concomitant]
     Indication: STAPHYLOCOCCAL INFECTION
  3. FUSIDIC ACID [Concomitant]

REACTIONS (1)
  - CUTANEOUS VASCULITIS [None]
